FAERS Safety Report 23173662 (Version 2)
Quarter: 2023Q4

REPORT INFORMATION
  Report Type: Spontaneous
  Country: DE (occurrence: DE)
  Receive Date: 20231111
  Receipt Date: 20231222
  Transmission Date: 20240109
  Serious: Yes (Other)
  Sender: FDA-Public Use
  Company Number: DE-002147023-NVSC2023DE182554

PATIENT
  Sex: Female
  Weight: 71 kg

DRUGS (4)
  1. ACLASTA [Suspect]
     Active Substance: ZOLEDRONIC ACID
     Indication: Osteoporosis
     Dosage: 5 MG, ONCE/SINGLE (INFUSION)
     Route: 042
     Dates: start: 20230713, end: 20230713
  2. IBUPROFEN [Concomitant]
     Active Substance: IBUPROFEN
     Indication: Product used for unknown indication
     Dosage: 600 MG (BEFORE INFUSION)
     Route: 065
  3. Metex [Concomitant]
     Indication: Rheumatic disorder
     Dosage: 10 MG, QW
     Route: 065
     Dates: start: 1999
  4. ACETAMINOPHEN [Concomitant]
     Active Substance: ACETAMINOPHEN
     Indication: Product used for unknown indication
     Dosage: 500 MG (BEFORE INFUSION)
     Route: 048

REACTIONS (5)
  - Carcinoembryonic antigen increased [Unknown]
  - Influenza like illness [Recovered/Resolved]
  - Pain in jaw [Recovered/Resolved]
  - Chills [Recovered/Resolved]
  - Arthralgia [Recovered/Resolved]

NARRATIVE: CASE EVENT DATE: 20230713
